FAERS Safety Report 8485889-1 (Version None)
Quarter: 2012Q3

REPORT INFORMATION
  Report Type: 
  Country: None (occurrence: None)
  Receive Date: 20120703
  Receipt Date: 20120626
  Transmission Date: 20120928
  Serious: Yes (Other)
  Sender: FDA-Public Use
  Company Number: DE-UCBSA-060620

PATIENT
  Age: 52 Year
  Sex: Female

DRUGS (4)
  1. VIMPAT [Suspect]
  2. VALPROATE SODIUM [Concomitant]
     Indication: CONVULSION
  3. VIMPAT [Suspect]
  4. LAMOTRGINE [Concomitant]
     Indication: CONVULSION

REACTIONS (3)
  - VISUAL IMPAIRMENT [None]
  - DIPLOPIA [None]
  - PALPITATIONS [None]
